FAERS Safety Report 8968018 (Version 2)
Quarter: 2013Q4

REPORT INFORMATION
  Report Type: Spontaneous
  Country: US (occurrence: US)
  Receive Date: 20121217
  Receipt Date: 20131030
  Transmission Date: 20140711
  Serious: Yes (Other)
  Sender: FDA-Public Use
  Company Number: US-BAYER-2012-130102

PATIENT
  Age: 36 Year
  Sex: Female

DRUGS (4)
  1. OCELLA [Suspect]
     Dosage: UNK
     Dates: start: 200904, end: 200910
  2. PERCOCET [Concomitant]
     Indication: PAIN
     Dosage: 4 TO 6 HRS, PRN
     Route: 048
  3. PHENERGAN [Concomitant]
     Indication: NAUSEA
     Dosage: 25 MG, 6 HOURS PRN
     Route: 048
  4. PHENERGAN [Concomitant]
     Indication: VOMITING

REACTIONS (9)
  - Cholecystitis acute [None]
  - Cholelithiasis [None]
  - Abdominal pain [None]
  - Injury [None]
  - Pain [None]
  - Emotional distress [None]
  - General physical health deterioration [None]
  - Anxiety [None]
  - Pain [None]
